FAERS Safety Report 9643327 (Version 1)
Quarter: 2013Q4

REPORT INFORMATION
  Report Type: Spontaneous
  Country: US (occurrence: US)
  Receive Date: 20131024
  Receipt Date: 20131024
  Transmission Date: 20140711
  Serious: Yes (Other)
  Sender: FDA-Public Use
  Company Number: US-ASTRAZENECA-2013SE76389

PATIENT
  Sex: Female

DRUGS (11)
  1. NEXIUM [Suspect]
     Route: 048
  2. TOPROL XL [Suspect]
     Route: 048
  3. LISINOPRIL [Suspect]
     Route: 048
  4. SEROQUEL [Suspect]
     Route: 048
  5. REMERON [Suspect]
     Route: 048
  6. RESTORIL [Suspect]
     Route: 048
  7. RANEXA [Suspect]
     Indication: PRODUCT USED FOR UNKNOWN INDICATION
     Route: 048
     Dates: start: 20130822
  8. LAMICTAL [Concomitant]
  9. ATIVAN [Concomitant]
  10. CARAFATE [Concomitant]
  11. ASA [Concomitant]

REACTIONS (6)
  - Panic attack [Unknown]
  - Anxiety [Unknown]
  - Feeling abnormal [Unknown]
  - Crying [Unknown]
  - Hallucination [Unknown]
  - Depression [Unknown]
